FAERS Safety Report 9267218 (Version 4)
Quarter: 2013Q3

REPORT INFORMATION
  Report Type: Spontaneous
  Country: FI (occurrence: FI)
  Receive Date: 20130502
  Receipt Date: 20130710
  Transmission Date: 20140515
  Serious: Yes (Other)
  Sender: FDA-Public Use
  Company Number: PHHY2013FI043238

PATIENT
  Age: 37 Year
  Sex: Female

DRUGS (5)
  1. GILENYA [Suspect]
     Indication: MULTIPLE SCLEROSIS
     Route: 048
     Dates: start: 20130130
  2. TRIMOPAN [Concomitant]
     Dates: start: 2010
  3. NITROFURANTOIN [Concomitant]
     Dates: start: 2010
  4. ZOPINOX [Concomitant]
     Dates: start: 2010
  5. MIRTAZAPINE [Concomitant]
     Dates: start: 2010

REACTIONS (4)
  - Epilepsy [Unknown]
  - Convulsion [Unknown]
  - Loss of consciousness [Unknown]
  - Tongue biting [Unknown]
